FAERS Safety Report 18257372 (Version 1)
Quarter: 2020Q3

REPORT INFORMATION
  Report Type: Spontaneous
  Country: US (occurrence: US)
  Receive Date: 20200910
  Receipt Date: 20200910
  Transmission Date: 20201103
  Serious: Yes (Disabling)
  Sender: FDA-Public Use
  Company Number: None

PATIENT
  Sex: Female

DRUGS (11)
  1. LEXAPRO 20 MG [Concomitant]
  2. VITAMIN D3 [Concomitant]
     Active Substance: CHOLECALCIFEROL
  3. CLARITIN [Concomitant]
     Active Substance: LORATADINE
  4. METOPROLOL SUCC ER [Concomitant]
     Active Substance: METOPROLOL SUCCINATE
  5. NP THYROID [Suspect]
     Active Substance: LEVOTHYROXINE\LIOTHYRONINE
     Indication: THYROID HORMONES DECREASED
     Dosage: ?          QUANTITY:30 PILLS;  EACH MORNING?
     Route: 048
  6. CRESTOR [Concomitant]
     Active Substance: ROSUVASTATIN CALCIUM
  7. FUROSEMIDE. [Concomitant]
     Active Substance: FUROSEMIDE
  8. SYSTANE EYEDROPS [Concomitant]
     Active Substance: POLYETHYLENE GLYCOL 400\PROPYLENE GLYCOL
  9. ARMOUR THYROID [Concomitant]
     Active Substance: THYROID, PORCINE
  10. ELIQUIS [Concomitant]
     Active Substance: APIXABAN
  11. K?DUR  POTASSIUM CL ER [Concomitant]

REACTIONS (7)
  - Loss of personal independence in daily activities [None]
  - Temperature intolerance [None]
  - Feeling abnormal [None]
  - Product measured potency issue [None]
  - Irritability [None]
  - Fatigue [None]
  - Hypertension [None]

NARRATIVE: CASE EVENT DATE: 20181111
